FAERS Safety Report 13209743 (Version 1)
Quarter: 2017Q1

REPORT INFORMATION
  Report Type: Spontaneous
  Country: US (occurrence: US)
  Receive Date: 20170209
  Receipt Date: 20170209
  Transmission Date: 20170428
  Serious: Yes (Death)
  Sender: FDA-Public Use
  Company Number: None

PATIENT
  Age: 62 Year
  Sex: Male

DRUGS (2)
  1. ARANESP [Suspect]
     Active Substance: DARBEPOETIN ALFA
     Indication: ANAEMIA OF CHRONIC DISEASE
     Dosage: 300MCG Q 3 WEEKS SQ
     Route: 058
     Dates: start: 20160805
  2. ARANESP [Suspect]
     Active Substance: DARBEPOETIN ALFA
     Indication: NEPHROGENIC ANAEMIA
     Dosage: 300MCG Q 3 WEEKS SQ
     Route: 058
     Dates: start: 20160805

REACTIONS (1)
  - Death [None]

NARRATIVE: CASE EVENT DATE: 20170207
